FAERS Safety Report 9163028 (Version 1)
Quarter: 2013Q1

REPORT INFORMATION
  Report Type: Spontaneous
  Country: US (occurrence: None)
  Receive Date: 20130313
  Receipt Date: 20130313
  Transmission Date: 20140127
  Serious: Yes (Hospitalization)
  Sender: FDA-Public Use
  Company Number: None

PATIENT
  Age: 58 Year
  Sex: Male
  Weight: 83.9 kg

DRUGS (15)
  1. DIVALPROEX SODIUM [Suspect]
     Indication: SCHIZOAFFECTIVE DISORDER BIPOLAR TYPE
     Route: 048
  2. DIVALPROEX SODIUM SR 1500MG [Concomitant]
     Route: 048
  3. ALBUTEROL NEBULIZER [Concomitant]
  4. ASPIRIN [Concomitant]
  5. PULMICORT FLEXHALER [Concomitant]
  6. BUMEX [Concomitant]
  7. CLONAZEPAM [Concomitant]
  8. DIGOXIN [Concomitant]
  9. LEXAPRO [Concomitant]
  10. ATROVENT [Concomitant]
  11. ZYPREXA [Concomitant]
  12. OMEPRAZOLE [Concomitant]
  13. KLOR-CON [Concomitant]
  14. FLOMAX [Concomitant]
  15. COUMADIN [Concomitant]

REACTIONS (6)
  - Lethargy [None]
  - Hypoxia [None]
  - Dyspnoea [None]
  - Speech disorder [None]
  - Confusional state [None]
  - Ammonia increased [None]
